FAERS Safety Report 18465884 (Version 2)
Quarter: 2020Q4

REPORT INFORMATION
  Report Type: Report from Study
  Country: None (occurrence: CA)
  Receive Date: 20201104
  Receipt Date: 20201106
  Transmission Date: 20210114
  Serious: Yes (Other)
  Sender: FDA-Public Use
  Company Number: CA-ABBVIE-20K-028-3632295-00

PATIENT
  Sex: Female

DRUGS (2)
  1. PREDNISONE. [Concomitant]
     Active Substance: PREDNISONE
     Indication: PRODUCT USED FOR UNKNOWN INDICATION
  2. RINVOQ [Suspect]
     Active Substance: UPADACITINIB
     Indication: RHEUMATOID ARTHRITIS
     Route: 048

REACTIONS (10)
  - Headache [Unknown]
  - Dental caries [Unknown]
  - Migraine with aura [Unknown]
  - Abscess [Unknown]
  - Musculoskeletal stiffness [Unknown]
  - Diabetes mellitus [Unknown]
  - Blindness [Unknown]
  - Inflammation [Unknown]
  - Pain [Unknown]
  - Blood cholesterol abnormal [Unknown]

NARRATIVE: CASE EVENT DATE: 2020
